FAERS Safety Report 8204026-1 (Version None)
Quarter: 2012Q1

REPORT INFORMATION
  Report Type: 
  Country: None (occurrence: None)
  Receive Date: 20120313
  Receipt Date: 20120306
  Transmission Date: 20120608
  Serious: No
  Sender: FDA-Public Use
  Company Number: US-PFIZER INC-2012050011

PATIENT
  Sex: Female

DRUGS (5)
  1. NORGESTREL AND ETHINYL ESTRADIOL [Suspect]
     Indication: OFF LABEL USE
  2. PAROXETINE HYDROCHLORIDE [Concomitant]
     Indication: DEPRESSION
  3. LISINOPRIL [Concomitant]
     Indication: HYPERTENSION
  4. METFORMIN [Concomitant]
     Indication: DIABETES MELLITUS
  5. NORGESTREL AND ETHINYL ESTRADIOL [Suspect]
     Indication: HORMONE THERAPY

REACTIONS (4)
  - FATIGUE [None]
  - PRODUCT QUALITY ISSUE [None]
  - INSOMNIA [None]
  - ASTHENIA [None]
